FAERS Safety Report 23879918 (Version 3)
Quarter: 2024Q3

REPORT INFORMATION
  Report Type: Spontaneous
  Country: US (occurrence: US)
  Receive Date: 20240521
  Receipt Date: 20240724
  Transmission Date: 20241016
  Serious: Yes (Other)
  Sender: PFIZER
  Company Number: US-PFIZER INC-PV202400064981

PATIENT
  Age: 2 Year
  Sex: Male
  Weight: 12.245 kg

DRUGS (2)
  1. BENEFIX [Suspect]
     Active Substance: COAGULATION FACTOR IX RECOMBINANT HUMAN\ISOPROPYL ALCOHOL
     Indication: Haemorrhage
     Dosage: UNK, 1X/DAY, [1 TIME ONLY]
     Route: 042
     Dates: start: 20240504
  2. BENEFIX [Suspect]
     Active Substance: COAGULATION FACTOR IX RECOMBINANT HUMAN\ISOPROPYL ALCOHOL
     Indication: Epistaxis

REACTIONS (1)
  - Epistaxis [Unknown]

NARRATIVE: CASE EVENT DATE: 20240501
